FAERS Safety Report 18029992 (Version 4)
Quarter: 2020Q4

REPORT INFORMATION
  Report Type: Report from Study
  Country: US (occurrence: US)
  Receive Date: 20200715
  Receipt Date: 20201023
  Transmission Date: 20210113
  Serious: No
  Sender: FDA-Public Use
  Company Number: NVSC2020US197782

PATIENT
  Sex: Female

DRUGS (2)
  1. PROMACTA [Suspect]
     Active Substance: ELTROMBOPAG OLAMINE
     Dosage: 100 MG, QD
     Route: 048
  2. PROMACTA [Suspect]
     Active Substance: ELTROMBOPAG OLAMINE
     Indication: THROMBOCYTOPENIA
     Dosage: 50 MG, QD
     Route: 048

REACTIONS (7)
  - Dehydration [Not Recovered/Not Resolved]
  - Peripheral swelling [Recovering/Resolving]
  - Fatigue [Recovering/Resolving]
  - Back pain [Recovering/Resolving]
  - Drug ineffective [Recovering/Resolving]
  - Dry mouth [Not Recovered/Not Resolved]
  - Urinary tract infection [Recovered/Resolved]
